FAERS Safety Report 5528205-7 (Version None)
Quarter: 2007Q4

REPORT INFORMATION
  Report Type: 
  Country: None (occurrence: None)
  Receive Date: 20071128
  Receipt Date: 20071120
  Transmission Date: 20080405
  Serious: Yes (Hospitalization)
  Sender: FDA-Public Use
  Company Number: FR-PFIZER INC-2007097668

PATIENT
  Sex: Male
  Weight: 100 kg

DRUGS (5)
  1. AMLOR [Suspect]
     Route: 048
  2. MOBIC [Suspect]
     Route: 048
     Dates: start: 20070701, end: 20070901
  3. CONTRAMAL [Suspect]
     Route: 048
     Dates: start: 20070701, end: 20070901
  4. EFFEXOR [Suspect]
     Dates: start: 20070301, end: 20070901
  5. LEVOTHYROXINE SODIUM [Concomitant]

REACTIONS (2)
  - HEPATIC FAILURE [None]
  - HEPATITIS FULMINANT [None]
